FAERS Safety Report 4639292-2 (Version None)
Quarter: 2005Q2

REPORT INFORMATION
  Report Type: 
  Country: None (occurrence: None)
  Receive Date: 20050419
  Receipt Date: 20050401
  Transmission Date: 20051028
  Serious: Yes (Other)
  Sender: FDA-Public Use
  Company Number: TRP_0096_2005

PATIENT
  Age: 48 Year
  Sex: Male

DRUGS (9)
  1. RIBASPHERE [Suspect]
     Indication: HEPATITIS C
     Dates: start: 20040930
  2. COMBIVENT [Concomitant]
  3. GLUCOTROL [Concomitant]
  4. METHADONE HYDROCHLORIDE [Concomitant]
  5. PEG-INTRON [Suspect]
     Indication: HEPATITIS C
     Dates: start: 20040930
  6. PAXIL [Concomitant]
  7. PRILOSEC [Concomitant]
  8. RISPERDAL [Concomitant]
  9. NAPROSYN [Concomitant]

REACTIONS (2)
  - PLEURAL EFFUSION [None]
  - PNEUMONIA [None]
